FAERS Safety Report 8270277-3 (Version None)
Quarter: 2012Q2

REPORT INFORMATION
  Report Type: 
  Country: None (occurrence: None)
  Receive Date: 20120410
  Receipt Date: 20120402
  Transmission Date: 20120825
  Serious: Yes (Hospitalization)
  Sender: FDA-Public Use
  Company Number: TW-B.I. PHARMACEUTICALS,INC./RIDGEFIELD-2012-EU-01852GD

PATIENT
  Age: 87 Year
  Sex: Female

DRUGS (2)
  1. DIPYRIDAMOLE [Suspect]
     Indication: CEREBRAL INFARCTION
  2. ASPIRIN [Suspect]
     Indication: CEREBRAL INFARCTION

REACTIONS (7)
  - ABDOMINAL WALL HAEMATOMA [None]
  - ABDOMINAL PAIN [None]
  - UPPER GASTROINTESTINAL HAEMORRHAGE [None]
  - HYPOTENSION [None]
  - GASTRIC ULCER [None]
  - HAEMODYNAMIC INSTABILITY [None]
  - ECCHYMOSIS [None]
